FAERS Safety Report 24024287 (Version 2)
Quarter: 2024Q3

REPORT INFORMATION
  Report Type: Report from Study
  Country: CN (occurrence: CN)
  Receive Date: 20240627
  Receipt Date: 20240710
  Transmission Date: 20241016
  Serious: No
  Sender: ROCHE
  Company Number: CN-ROCHE-3240798

PATIENT
  Age: 83 Year
  Sex: Male

DRUGS (6)
  1. ALECTINIB [Suspect]
     Active Substance: ALECTINIB
     Indication: Non-small cell lung cancer
     Route: 048
     Dates: start: 20220505
  2. FELODIPINE [Concomitant]
     Active Substance: FELODIPINE
     Indication: Hypertension
     Route: 048
  3. OME [Concomitant]
     Dosage: CSG
     Route: 065
  4. HYDROTALCITE [Concomitant]
     Active Substance: HYDROTALCITE
     Indication: Chronic gastritis
     Dosage: CHEWABLE
     Route: 065
  5. ALECTINIB [Concomitant]
     Active Substance: ALECTINIB
     Dates: start: 20220505
  6. COMPOUND GLYCYRRHIZA ORAL SOLUTION [Concomitant]
     Indication: Productive cough
     Route: 048
     Dates: start: 20230110, end: 202301

REACTIONS (1)
  - Anaemia [Not Recovered/Not Resolved]

NARRATIVE: CASE EVENT DATE: 20221018
